FAERS Safety Report 4522544-4 (Version None)
Quarter: 2004Q4

REPORT INFORMATION
  Report Type: 
  Country: None (occurrence: None)
  Receive Date: 20041207
  Receipt Date: 20041123
  Transmission Date: 20050328
  Serious: Yes (Hospitalization)
  Sender: FDA-Public Use
  Company Number: FR_041105285

PATIENT
  Age: 79 Year
  Sex: Female

DRUGS (7)
  1. ZYPREXA [Suspect]
     Route: 048
     Dates: start: 20040419, end: 20040525
  2. LAROXYL            (AMITRIPYLINE HYDROCHLORIDE0 [Suspect]
  3. XANAX                      (ALPRAZOLAM DUM) [Concomitant]
  4. ARICEPT [Concomitant]
  5. PAROXETINE HCL [Concomitant]
  6. ZESTORETIC [Concomitant]
  7. INIPOMP (PANTOPRAZOLE) [Concomitant]

REACTIONS (2)
  - CATATONIA [None]
  - DISTURBANCE IN ATTENTION [None]
